FAERS Safety Report 12552864 (Version 12)
Quarter: 2020Q2

REPORT INFORMATION
  Report Type: Spontaneous
  Country: JP (occurrence: JP)
  Receive Date: 20160713
  Receipt Date: 20200511
  Transmission Date: 20200713
  Serious: Yes (Other)
  Sender: FDA-Public Use
  Company Number: JP-AEGERION-AEGR001654

PATIENT

DRUGS (16)
  1. MERCAZOLE [Concomitant]
     Active Substance: CARBIMAZOLE
     Indication: BASEDOW^S DISEASE
     Dosage: UNK
     Dates: start: 20140718, end: 20190827
  2. GONALEF [Concomitant]
     Active Substance: FOLLITROPIN
     Indication: PRODUCT USED FOR UNKNOWN INDICATION
     Dosage: UNK
     Route: 058
     Dates: start: 20160128, end: 20160228
  3. MAGMITT [Concomitant]
     Active Substance: MAGNESIUM OXIDE
     Indication: CONSTIPATION
     Dosage: UNK
     Dates: start: 20180112, end: 20180326
  4. BANAN [Concomitant]
     Active Substance: CEFPODOXIME PROXETIL
     Indication: INFERTILITY
     Dosage: UNK
     Dates: start: 20170729, end: 20170801
  5. DEXALTIN [Concomitant]
     Active Substance: DEXAMETHASONE
     Indication: STOMATITIS
     Dosage: UNK
     Dates: start: 20131204, end: 20131217
  6. BUSERECUR [Concomitant]
     Active Substance: BUSERELIN ACETATE
     Indication: PRODUCT USED FOR UNKNOWN INDICATION
     Dosage: UNK
     Dates: start: 20160114, end: 20160201
  7. FERROMIA [Concomitant]
     Active Substance: SODIUM FERROUS CITRATE
     Indication: PRODUCT USED FOR UNKNOWN INDICATION
     Dosage: UNK
     Dates: end: 20140822
  8. TENORMIN [Concomitant]
     Active Substance: ATENOLOL
     Indication: BASEDOW^S DISEASE
     Dosage: UNK
     Dates: start: 20140710, end: 20140801
  9. UTROGESTAN [Concomitant]
     Active Substance: PROGESTERONE
     Indication: INFERTILITY
     Dosage: UNK
     Dates: start: 20140410, end: 20171014
  10. METHYLERGOMETRINE MALEATE [Concomitant]
     Active Substance: METHYLERGONOVINE MALEATE
     Indication: INFERTILITY
     Dosage: 0.375 MG, QD
     Route: 048
     Dates: start: 20160930, end: 20180524
  11. FERRUM                             /00023505/ [Concomitant]
     Indication: PRODUCT USED FOR UNKNOWN INDICATION
     Dosage: UNK
     Dates: start: 20180112, end: 20180125
  12. ESTRANA [Concomitant]
     Active Substance: ESTRADIOL
     Indication: INFERTILITY
     Dosage: UNK
     Dates: start: 20160220, end: 20170930
  13. METRELEPTIN SHIONOGI [Suspect]
     Active Substance: METRELEPTIN
     Indication: LIPOATROPHY
     Dosage: 3.825 MG, QD
     Route: 058
     Dates: start: 20090509, end: 20130924
  14. TENORMIN [Concomitant]
     Active Substance: ATENOLOL
     Indication: PROPHYLAXIS
     Dosage: UNK
     Dates: start: 20160720, end: 20160810
  15. POTASSIUM IODIDE. [Concomitant]
     Active Substance: POTASSIUM IODIDE
     Indication: BASEDOW^S DISEASE
     Dosage: 50 MG, QD
     Route: 048
     Dates: start: 20160720, end: 20181204
  16. METRELEPTIN SHIONOGI [Suspect]
     Active Substance: METRELEPTIN
     Dosage: 3.825 MG, QD
     Route: 058
     Dates: start: 20130925

REACTIONS (8)
  - Constipation [Recovering/Resolving]
  - Maternal exposure during pregnancy [Unknown]
  - Stomatitis [Recovered/Resolved]
  - Basedow^s disease [Recovered/Resolved]
  - Normal newborn [Unknown]
  - Gestational diabetes [Recovered/Resolved]
  - Infertility [Not Recovered/Not Resolved]
  - Maternal exposure during breast feeding [Unknown]

NARRATIVE: CASE EVENT DATE: 20131204
